FAERS Safety Report 7600251-9 (Version None)
Quarter: 2011Q3

REPORT INFORMATION
  Report Type: 
  Country: None (occurrence: None)
  Receive Date: 20110711
  Receipt Date: 20110707
  Transmission Date: 20111222
  Serious: Yes (Death, Hospitalization)
  Sender: FDA-Public Use
  Company Number: US-B.I. PHARMACEUTICALS,INC./RIDGEFIELD-2011-BP-17176BP

PATIENT
  Age: 75 Year
  Sex: Female

DRUGS (1)
  1. PRADAXA [Suspect]

REACTIONS (4)
  - PULMONARY EMBOLISM [None]
  - URINARY TRACT INFECTION [None]
  - INTERNATIONAL NORMALISED RATIO ABNORMAL [None]
  - DEEP VEIN THROMBOSIS [None]
